FAERS Safety Report 6313705-2 (Version None)
Quarter: 2009Q3

REPORT INFORMATION
  Report Type: 
  Country: None (occurrence: None)
  Receive Date: 20090817
  Receipt Date: 20090817
  Transmission Date: 20100115
  Serious: Yes (Hospitalization)
  Sender: FDA-Public Use
  Company Number: None

PATIENT
  Sex: Female
  Weight: 13.8 kg

DRUGS (6)
  1. CYTARABINE [Suspect]
     Dosage: 70 MG
  2. DEXAMETHASONE [Suspect]
     Dosage: 112 MG
  3. LEUCOVORIN CALCIUM [Suspect]
     Dosage: 12 MG
  4. METHOTREXATE [Suspect]
     Dosage: 24 MG
  5. ONCASPAR [Suspect]
     Dosage: 1550 MG
  6. VINCRISTINE SULFATE [Suspect]
     Dosage: 3.6 MG

REACTIONS (6)
  - DYSPNOEA [None]
  - INFLUENZA [None]
  - LETHARGY [None]
  - NEUTROPENIA [None]
  - PLATELET COUNT DECREASED [None]
  - WHITE BLOOD CELL COUNT DECREASED [None]
